FAERS Safety Report 7899978-3 (Version None)
Quarter: 2011Q4

REPORT INFORMATION
  Report Type: 
  Country: None (occurrence: None)
  Receive Date: 20111107
  Receipt Date: 20111026
  Transmission Date: 20120403
  Serious: No
  Sender: FDA-Public Use
  Company Number: US-AMGEN-USASP2011047530

PATIENT
  Age: 60 Year
  Sex: Female

DRUGS (1)
  1. ENBREL [Suspect]
     Indication: RHEUMATOID ARTHRITIS
     Dosage: 25 MG, QWK
     Dates: start: 20110629

REACTIONS (8)
  - INFLUENZA [None]
  - MUSCLE SPASMS [None]
  - FATIGUE [None]
  - BLOOD IRON DECREASED [None]
  - ARTHRALGIA [None]
  - INJECTION SITE PRURITUS [None]
  - ANAEMIA [None]
  - URINARY TRACT INFECTION [None]
